FAERS Safety Report 21389929 (Version 1)
Quarter: 2022Q3

REPORT INFORMATION
  Report Type: Spontaneous
  Country: IT (occurrence: IT)
  Receive Date: 20220929
  Receipt Date: 20220929
  Transmission Date: 20221027
  Serious: Yes (Other)
  Sender: FDA-Public Use
  Company Number: None

PATIENT
  Age: 73 Year
  Sex: Male

DRUGS (4)
  1. CEFUROXIME AXETIL [Suspect]
     Active Substance: CEFUROXIME AXETIL
     Indication: Product used for unknown indication
     Dosage: UNK
     Route: 031
  2. Betamethasone, Chloramphenicol [Concomitant]
     Indication: Postoperative care
     Dosage: UNK, QID (EVERY 3 HOUR)
     Route: 061
  3. BROMFENAC [Concomitant]
     Active Substance: BROMFENAC SODIUM
     Indication: Postoperative care
     Dosage: UNK, BID (EVERY 12 HOUR)
     Route: 061
  4. Miochol-E 10 MG/ML [Concomitant]
     Indication: Product used for unknown indication
     Dosage: UNK
     Route: 031

REACTIONS (1)
  - Cystoid macular oedema [Recovered/Resolved]
